FAERS Safety Report 23678586 (Version 1)
Quarter: 2024Q1

REPORT INFORMATION
  Report Type: Spontaneous
  Country: US (occurrence: None)
  Receive Date: 20240327
  Receipt Date: 20240327
  Transmission Date: 20240410
  Serious: Yes (Other)
  Sender: FDA-Public Use
  Company Number: 2024A067556

PATIENT
  Age: 73 Year
  Sex: Male

DRUGS (1)
  1. FARXIGA [Suspect]
     Active Substance: DAPAGLIFLOZIN PROPANEDIOL
     Route: 048
     Dates: start: 20240101

REACTIONS (13)
  - Blood glucose increased [Unknown]
  - Urine ketone body present [Unknown]
  - Fatigue [Unknown]
  - Nausea [Unknown]
  - Decreased appetite [Unknown]
  - Pollakiuria [Unknown]
  - Micturition urgency [Unknown]
  - Hypoglycaemia [Unknown]
  - Sunburn [Unknown]
  - Chills [Unknown]
  - Drug interaction [Unknown]
  - Drug ineffective [Unknown]
  - Product dose omission issue [Unknown]

NARRATIVE: CASE EVENT DATE: 20240315
